FAERS Safety Report 15589904 (Version 2)
Quarter: 2018Q4

REPORT INFORMATION
  Report Type: Spontaneous
  Country: SK (occurrence: SK)
  Receive Date: 20181106
  Receipt Date: 20181211
  Transmission Date: 20190205
  Serious: Yes (Other)
  Sender: FDA-Public Use
  Company Number: SK-BAUSCH-BL-2018-029994

PATIENT
  Age: 69 Year
  Sex: Male

DRUGS (11)
  1. PREDNISONE. [Suspect]
     Active Substance: PREDNISONE
     Indication: PRODUCT USED FOR UNKNOWN INDICATION
     Route: 065
     Dates: start: 200902
  2. MELPHALANE [Suspect]
     Active Substance: MELPHALAN
     Indication: PRODUCT USED FOR UNKNOWN INDICATION
     Route: 065
     Dates: start: 200902
  3. DEXAMETHASONE. [Suspect]
     Active Substance: DEXAMETHASONE
     Dosage: 8 CYCLES
     Route: 065
     Dates: start: 201403
  4. PREDNISONE. [Suspect]
     Active Substance: PREDNISONE
     Dosage: 10 CYCLES
     Route: 065
     Dates: start: 201506
  5. BORTEZOMIB. [Suspect]
     Active Substance: BORTEZOMIB
     Indication: PLASMA CELL MYELOMA
     Dosage: 8 CYCLES
     Route: 065
     Dates: start: 200804
  6. BORTEZOMIB. [Suspect]
     Active Substance: BORTEZOMIB
     Route: 065
     Dates: start: 200902
  7. LENALIDOMIDE [Suspect]
     Active Substance: LENALIDOMIDE
     Indication: PLASMA CELL MYELOMA
     Dosage: WITHIN 8 CYCLES
     Route: 065
     Dates: start: 201003
  8. LENALIDOMIDE [Suspect]
     Active Substance: LENALIDOMIDE
     Route: 065
     Dates: start: 201403
  9. DEXAMETHASONE. [Suspect]
     Active Substance: DEXAMETHASONE
     Indication: PLASMA CELL MYELOMA
     Dosage: 8 CYCLES WERE ADMINISTERED
     Route: 065
     Dates: start: 200804
  10. DEXAMETHASONE. [Suspect]
     Active Substance: DEXAMETHASONE
     Dosage: WITH IN 8 CYCLES
     Route: 065
     Dates: start: 201003
  11. MELPHALANE [Suspect]
     Active Substance: MELPHALAN
     Dosage: 10 CYCLES
     Route: 065
     Dates: start: 201506

REACTIONS (5)
  - Polyneuropathy [Recovering/Resolving]
  - Leukopenia [Unknown]
  - Infection [Unknown]
  - Diarrhoea [Unknown]
  - Thrombocytopenia [Unknown]

NARRATIVE: CASE EVENT DATE: 2009
